FAERS Safety Report 25445950 (Version 2)
Quarter: 2025Q3

REPORT INFORMATION
  Report Type: Spontaneous
  Country: EU (occurrence: EU)
  Receive Date: 20250617
  Receipt Date: 20250817
  Transmission Date: 20251020
  Serious: Yes (Other)
  Sender: SANOFI AVENTIS
  Company Number: EU-SANOFI-02549988

PATIENT
  Age: 59 Year
  Sex: Female

DRUGS (2)
  1. LIXISENATIDE [Suspect]
     Active Substance: LIXISENATIDE
     Indication: Parkinson^s disease
     Dosage: 20 MG, QD
     Route: 058
     Dates: start: 2019, end: 2020
  2. LIXISENATIDE [Suspect]
     Active Substance: LIXISENATIDE
     Dosage: 20 MG, QD
     Route: 058
     Dates: start: 2024

REACTIONS (13)
  - Parkinson^s disease [Unknown]
  - Rebound effect [Unknown]
  - Dystonia [Unknown]
  - Fatigue [Unknown]
  - Tremor [Unknown]
  - Affective disorder [Unknown]
  - Anxiety [Unknown]
  - Arthralgia [Unknown]
  - Motor dysfunction [Recovering/Resolving]
  - Condition aggravated [Recovering/Resolving]
  - Irregular sleep wake rhythm disorder [Unknown]
  - Off label use [Unknown]
  - Drug effective for unapproved indication [Unknown]

NARRATIVE: CASE EVENT DATE: 20190101
